FAERS Safety Report 7672157-0 (Version None)
Quarter: 2011Q3

REPORT INFORMATION
  Report Type: 
  Country: None (occurrence: None)
  Receive Date: 20110809
  Receipt Date: 20110803
  Transmission Date: 20111222
  Serious: Yes (Hospitalization)
  Sender: FDA-Public Use
  Company Number: PHHO2011IL07238

PATIENT
  Sex: Male

DRUGS (9)
  1. MYCOPHENOLIC ACID [Suspect]
     Indication: RENAL TRANSPLANT
     Dosage: 1440 MG, DAILY
     Route: 048
     Dates: start: 20110302
  2. PROGRAF [Suspect]
     Indication: RENAL TRANSPLANT
     Dosage: 13 MG, DAILY
     Route: 048
     Dates: start: 20110302, end: 20110420
  3. COZAAR [Concomitant]
     Indication: HYPERTENSION
  4. LIPITOR [Concomitant]
     Indication: DYSLIPIDAEMIA
  5. RAD 666 / RAD 001A [Suspect]
     Indication: RENAL TRANSPLANT
     Dosage: 2 MG, DAILY
     Route: 048
     Dates: start: 20110420
  6. SIMULECT [Concomitant]
     Indication: RENAL TRANSPLANT
     Dosage: 25 MG
     Dates: start: 20110301, end: 20110301
  7. RESPRIM [Concomitant]
  8. SIMULECT [Concomitant]
     Dosage: 25 MG
     Dates: start: 20110304, end: 20110304
  9. ASPIRIN [Concomitant]

REACTIONS (1)
  - TOXIC OPTIC NEUROPATHY [None]
